FAERS Safety Report 8204387-3 (Version None)
Quarter: 2012Q1

REPORT INFORMATION
  Report Type: 
  Country: None (occurrence: None)
  Receive Date: 20120313
  Receipt Date: 20120313
  Transmission Date: 20120608
  Serious: No
  Sender: FDA-Public Use
  Company Number: None

PATIENT
  Age: 31 Year
  Sex: Female
  Weight: 135.17 kg

DRUGS (1)
  1. JOLIVETTE [Suspect]
     Indication: UNINTENDED PREGNANCY
     Dosage: 0.35MG
     Route: 048
     Dates: start: 20100415, end: 20111229

REACTIONS (3)
  - MATERNAL EXPOSURE DURING PREGNANCY [None]
  - PREGNANCY ON ORAL CONTRACEPTIVE [None]
  - PRODUCT QUALITY ISSUE [None]
